FAERS Safety Report 23978745 (Version 1)
Quarter: 2024Q2

REPORT INFORMATION
  Report Type: Spontaneous
  Country: US (occurrence: US)
  Receive Date: 20240615
  Receipt Date: 20240615
  Transmission Date: 20240716
  Serious: Yes (Hospitalization, Other)
  Sender: FDA-Public Use
  Company Number: US-ABBVIE-5799834

PATIENT
  Age: 67 Year
  Sex: Female

DRUGS (3)
  1. VRAYLAR [Suspect]
     Active Substance: CARIPRAZINE
     Indication: Major depression
     Dosage: FORM STRENGTH: 1.5MG (CARIPRAZINE HCL 1.5MG CAP)
     Route: 048
  2. FLUOXETINE [Concomitant]
     Active Substance: FLUOXETINE HYDROCHLORIDE
     Indication: Major depression
  3. LYRICA [Concomitant]
     Active Substance: PREGABALIN
     Indication: Pain

REACTIONS (2)
  - Cerebrovascular accident [Unknown]
  - Swollen tongue [Unknown]
